FAERS Safety Report 6206791-1 (Version None)
Quarter: 2009Q2

REPORT INFORMATION
  Report Type: 
  Country: None (occurrence: None)
  Receive Date: 20090528
  Receipt Date: 20090518
  Transmission Date: 20091009
  Serious: No
  Sender: FDA-Public Use
  Company Number: US-B.I. PHARMACEUTICALS,INC./RIDGEFIELD-2009-BP-06206BP

PATIENT
  Age: 66 Year
  Sex: Female
  Weight: 66.8 kg

DRUGS (15)
  1. COMBIVENT [Suspect]
  2. BROVANA [Suspect]
     Indication: CHRONIC OBSTRUCTIVE PULMONARY DISEASE
     Route: 055
     Dates: start: 20090101, end: 20090101
  3. GLUCOPHAGE [Concomitant]
  4. GLUCOTROL [Concomitant]
  5. ESTROGENIC SUBSTANCE [Concomitant]
  6. THEO-24 [Concomitant]
  7. LASIX [Concomitant]
  8. K-DUR [Concomitant]
  9. ALPRAZOLAM [Concomitant]
  10. ACIPHEX [Concomitant]
  11. PREDNISONE [Concomitant]
  12. LANOXIN [Concomitant]
  13. VERAPAMIL [Concomitant]
  14. IBUPROFEN [Concomitant]
  15. PULMICORT-100 [Concomitant]

REACTIONS (2)
  - OROPHARYNGEAL PAIN [None]
  - URINARY HESITATION [None]
